FAERS Safety Report 12146086 (Version 1)
Quarter: 2016Q1

REPORT INFORMATION
  Report Type: Spontaneous
  Country: US (occurrence: US)
  Receive Date: 20160304
  Receipt Date: 20160304
  Transmission Date: 20160526
  Serious: No
  Sender: FDA-Public Use
  Company Number: US-PERRIGO-15US007195

PATIENT
  Sex: Female

DRUGS (1)
  1. NAPROXEN SODIUM 220 MG 490 [Suspect]
     Active Substance: NAPROXEN SODIUM
     Indication: ACCIDENTAL EXPOSURE TO PRODUCT
     Dosage: 220 MG, QD
     Route: 048
     Dates: start: 201506, end: 20150709

REACTIONS (2)
  - Accidental exposure to product [Recovered/Resolved]
  - No adverse event [Unknown]

NARRATIVE: CASE EVENT DATE: 201506
